FAERS Safety Report 6450132-1 (Version None)
Quarter: 2009Q4

REPORT INFORMATION
  Report Type: 
  Country: None (occurrence: None)
  Receive Date: 20091123
  Receipt Date: 20091103
  Transmission Date: 20100525
  Serious: Yes (Disabling, Other)
  Sender: FDA-Public Use
  Company Number: US-MYLANLABS-2009S1019259

PATIENT
  Age: 75 Year
  Sex: Male

DRUGS (10)
  1. CLONAZEPAM [Suspect]
     Indication: TREMOR
     Route: 048
     Dates: start: 20090707, end: 20090711
  2. CLONIDINE [Concomitant]
     Indication: BLOOD PRESSURE INCREASED
     Route: 048
  3. LISINOPRIL [Concomitant]
     Indication: BLOOD PRESSURE INCREASED
     Route: 048
  4. COMBIGAN [Concomitant]
     Indication: GLAUCOMA
     Route: 047
  5. GLIPIZIDE [Concomitant]
     Indication: DIABETES MELLITUS
     Route: 048
  6. TOPROL-XL [Concomitant]
     Indication: BLOOD PRESSURE INCREASED
     Route: 048
  7. METFORMIN HCL [Concomitant]
     Indication: DIABETES MELLITUS
     Route: 048
  8. FOLIC ACID [Concomitant]
     Route: 048
  9. NORVASC [Concomitant]
     Indication: BLOOD PRESSURE INCREASED
     Route: 048
  10. DIOVAN [Concomitant]
     Indication: BLOOD PRESSURE INCREASED
     Route: 048

REACTIONS (15)
  - ABDOMINAL PAIN UPPER [None]
  - BALANCE DISORDER [None]
  - BLINDNESS [None]
  - BLOOD PRESSURE INCREASED [None]
  - CLUMSINESS [None]
  - DECREASED APPETITE [None]
  - DIZZINESS [None]
  - GENERAL PHYSICAL HEALTH DETERIORATION [None]
  - HEADACHE [None]
  - HYPERHIDROSIS [None]
  - PRURITUS [None]
  - SLEEP DISORDER [None]
  - URINE COLOUR ABNORMAL [None]
  - URINE OUTPUT DECREASED [None]
  - VISUAL IMPAIRMENT [None]
